FAERS Safety Report 7367427-X (Version None)
Quarter: 2011Q1

REPORT INFORMATION
  Report Type: 
  Country: None (occurrence: None)
  Receive Date: 20110322
  Receipt Date: 20110317
  Transmission Date: 20110831
  Serious: Yes (Life-Threatening)
  Sender: FDA-Public Use
  Company Number: LB-ASTRAZENECA-2011SE15145

PATIENT
  Age: 80 Year
  Sex: Female

DRUGS (2)
  1. ANAFRANIL [Concomitant]
     Indication: FRONTOTEMPORAL DEMENTIA
     Route: 048
  2. SEROQUEL [Suspect]
     Indication: AGITATION
     Route: 048
     Dates: start: 20110201, end: 20110201

REACTIONS (1)
  - TORSADE DE POINTES [None]
